FAERS Safety Report 17591107 (Version 1)
Quarter: 2020Q1

REPORT INFORMATION
  Report Type: Spontaneous
  Country: US (occurrence: US)
  Receive Date: 20200327
  Receipt Date: 20200327
  Transmission Date: 20200409
  Serious: No
  Sender: FDA-Public Use
  Company Number: US-PFIZER INC-2020122825

PATIENT
  Age: 56 Year
  Sex: Female
  Weight: 95.25 kg

DRUGS (2)
  1. CELECOXIB. [Suspect]
     Active Substance: CELECOXIB
     Indication: ARTHRITIS
     Dosage: 200 MG, 1X/DAY
     Route: 048
     Dates: start: 2017
  2. GINGER ROOT [Concomitant]
     Active Substance: GINGER
     Indication: DYSPEPSIA
     Dosage: 550 MG, 1X/DAY
     Route: 048
     Dates: start: 20191124

REACTIONS (1)
  - Drug ineffective [Not Recovered/Not Resolved]

NARRATIVE: CASE EVENT DATE: 2017
